FAERS Safety Report 11754140 (Version 1)
Quarter: 2015Q4

REPORT INFORMATION
  Report Type: Spontaneous
  Country: US (occurrence: None)
  Receive Date: 20151118
  Receipt Date: 20151118
  Transmission Date: 20160304
  Serious: Yes (Hospitalization)
  Sender: FDA-Public Use
  Company Number: None

PATIENT
  Age: 76 Year
  Sex: Male
  Weight: 73.3 kg

DRUGS (1)
  1. MORPHINE [Suspect]
     Active Substance: MORPHINE
     Indication: PAIN
     Dosage: FREQUENCY OTHER
     Route: 042
     Dates: start: 20150704, end: 20150706

REACTIONS (3)
  - Constipation [None]
  - Ileus [None]
  - Abdominal distension [None]

NARRATIVE: CASE EVENT DATE: 20150709
